FAERS Safety Report 10375280 (Version 2)
Quarter: 2014Q4

REPORT INFORMATION
  Report Type: Spontaneous
  Country: AU (occurrence: AU)
  Receive Date: 20140811
  Receipt Date: 20141017
  Transmission Date: 20150528
  Serious: Yes (Hospitalization, Other)
  Sender: FDA-Public Use
  Company Number: AU-AMGEN-AUSSP2014059766

PATIENT
  Age: 78 Year
  Sex: Female
  Weight: 43 kg

DRUGS (13)
  1. FURSEMIDE [Concomitant]
     Dosage: 40 MG, QD
  2. NEXIUM [Concomitant]
     Active Substance: ESOMEPRAZOLE MAGNESIUM
  3. METOPROLOL [Concomitant]
     Active Substance: METOPROLOL
  4. PERINDOPRIL [Concomitant]
     Active Substance: PERINDOPRIL
     Dosage: 5 MG, QD
  5. TIOTROPIUM [Concomitant]
     Active Substance: TIOTROPIUM
     Dosage: 18 MUG, QD
  6. PROLIA [Suspect]
     Active Substance: DENOSUMAB
     Indication: OSTEOPOROSIS POSTMENOPAUSAL
     Dosage: 60 MG, Q6MO
     Route: 065
     Dates: start: 20120726, end: 201312
  7. VAGIFEM [Concomitant]
     Active Substance: ESTRADIOL
  8. FLUTICASONE W/SALMETEROL [Concomitant]
     Active Substance: FLUTICASONE PROPIONATE\SALMETEROL XINAFOATE
     Dosage: 25/250 MCG, BID
  9. ESOMEPRAZOLE [Concomitant]
     Active Substance: ESOMEPRAZOLE
     Dosage: 40 MG, QD
  10. IVABRADINE [Concomitant]
     Active Substance: IVABRADINE
     Dosage: 5 MG, QD
  11. COVERSYL                           /00790702/ [Concomitant]
     Active Substance: PERINDOPRIL
  12. CHOLECALCIFEROL [Concomitant]
     Active Substance: CHOLECALCIFEROL
     Dosage: 25 MG, QD
  13. DIGOXIN. [Concomitant]
     Active Substance: DIGOXIN
     Dosage: 62.5 MUG, QD

REACTIONS (3)
  - Pulmonary embolism [Not Recovered/Not Resolved]
  - Infective exacerbation of chronic obstructive airways disease [Not Recovered/Not Resolved]
  - Pulmonary infarction [Unknown]

NARRATIVE: CASE EVENT DATE: 201210
